FAERS Safety Report 18067615 (Version 1)
Quarter: 2020Q3

REPORT INFORMATION
  Report Type: Spontaneous
  Country: US (occurrence: US)
  Receive Date: 20200724
  Receipt Date: 20200724
  Transmission Date: 20201103
  Serious: Yes (Other)
  Sender: FDA-Public Use
  Company Number: US-SA-2020SA186965

PATIENT

DRUGS (3)
  1. ADMELOG [Suspect]
     Active Substance: INSULIN LISPRO
     Indication: DIABETES MELLITUS
     Dosage: UNK
  2. ADMELOG [Suspect]
     Active Substance: INSULIN LISPRO
     Dosage: 10 IU
  3. ADMELOG [Suspect]
     Active Substance: INSULIN LISPRO
     Dosage: UNK

REACTIONS (3)
  - Product temperature excursion issue [Recovered/Resolved]
  - Diabetes mellitus inadequate control [Recovered/Resolved]
  - Drug ineffective [Recovered/Resolved]
